FAERS Safety Report 21743238 (Version 2)
Quarter: 2022Q4

REPORT INFORMATION
  Report Type: Spontaneous
  Country: FR (occurrence: FR)
  Receive Date: 20221217
  Receipt Date: 20221219
  Transmission Date: 20230113
  Serious: Yes (Life-Threatening)
  Sender: FDA-Public Use
  Company Number: None

PATIENT
  Age: 57 Year
  Sex: Male
  Weight: 126 kg

DRUGS (9)
  1. BACLOFEN [Interacting]
     Active Substance: BACLOFEN
     Indication: Neurogenic bladder
     Dosage: 180 MG, QD
     Route: 048
     Dates: end: 20221118
  2. QUETIAPINE [Interacting]
     Active Substance: QUETIAPINE
     Indication: Bipolar disorder
     Dosage: 300 MG,QD
     Route: 048
  3. MEROPENEM ANHYDROUS [Interacting]
     Active Substance: MEROPENEM ANHYDROUS
     Indication: Antibiotic therapy
     Dosage: 6 G,QD
     Route: 042
     Dates: start: 20221118, end: 20221119
  4. AUGMENTIN [Interacting]
     Active Substance: AMOXICILLIN\CLAVULANATE POTASSIUM
     Indication: Antibiotic therapy
     Dosage: UNK
     Route: 065
     Dates: start: 20221117, end: 20221118
  5. HYDROCORTISONE [Concomitant]
     Active Substance: HYDROCORTISONE
     Indication: Product used for unknown indication
     Dosage: 30 MG,QD
     Route: 048
  6. PREGABALIN [Concomitant]
     Active Substance: PREGABALIN
     Indication: Product used for unknown indication
     Dosage: 75 MG,QD
     Route: 048
  7. AMLODIPINE [Concomitant]
     Active Substance: AMLODIPINE BESYLATE
     Indication: Product used for unknown indication
     Dosage: 10 MG,QD
     Route: 048
  8. RAMIPRIL [Concomitant]
     Active Substance: RAMIPRIL
     Indication: Product used for unknown indication
     Dosage: 2.5 MG,QD
     Route: 048
  9. LEVOTHYROXINE SODIUM [Concomitant]
     Active Substance: LEVOTHYROXINE SODIUM
     Indication: Product used for unknown indication
     Dosage: 50 UG,QD
     Route: 048

REACTIONS (3)
  - Coma [Recovered/Resolved]
  - Drug interaction [Recovered/Resolved]
  - Status epilepticus [Recovered/Resolved]

NARRATIVE: CASE EVENT DATE: 20221118
